FAERS Safety Report 8346556 (Version 6)
Quarter: 2015Q2

REPORT INFORMATION
  Report Type: Report from Study
  Country: BR (occurrence: BR)
  Receive Date: 20120120
  Receipt Date: 20150604
  Transmission Date: 20150821
  Serious: Yes (Hospitalization, Other)
  Sender: FDA-Public Use
  Company Number: BR-ROCHE-789385

PATIENT
  Sex: Female
  Weight: 50 kg

DRUGS (15)
  1. PANTOPRAZOLE [Concomitant]
     Active Substance: PANTOPRAZOLE SODIUM
     Route: 065
  2. MABTHERA [Suspect]
     Active Substance: RITUXIMAB
     Route: 042
  3. ACTEMRA [Suspect]
     Active Substance: TOCILIZUMAB
     Indication: RHEUMATOID ARTHRITIS
     Route: 042
     Dates: start: 20140316
  4. METHOTREXATE [Suspect]
     Active Substance: METHOTREXATE
     Indication: PRODUCT USED FOR UNKNOWN INDICATION
     Route: 065
  5. DOMPERIDONE [Concomitant]
     Active Substance: DOMPERIDONE
     Dosage: AS NECESSARY
     Route: 065
  6. OMEPRAZOLE. [Concomitant]
     Active Substance: OMEPRAZOLE
  7. RIVOTRIL [Concomitant]
     Active Substance: CLONAZEPAM
     Indication: INSOMNIA
     Route: 065
  8. ROSUVASTATIN [Concomitant]
     Active Substance: ROSUVASTATIN
  9. MABTHERA [Suspect]
     Active Substance: RITUXIMAB
     Route: 042
  10. ACTEMRA [Suspect]
     Active Substance: TOCILIZUMAB
     Route: 042
     Dates: start: 20150505
  11. TYLENOL [Concomitant]
     Active Substance: ACETAMINOPHEN
     Dosage: PRE-MEDICATION
     Route: 065
     Dates: start: 201102, end: 201102
  12. PREDNISONE. [Concomitant]
     Active Substance: PREDNISONE
  13. MABTHERA [Suspect]
     Active Substance: RITUXIMAB
     Indication: RHEUMATOID ARTHRITIS
     Dosage: DOSE RECEIVED ON 05-SEP-2011
     Route: 042
     Dates: start: 20110207, end: 20110919
  14. TRAMAL [Concomitant]
     Active Substance: TRAMADOL
     Indication: PAIN
     Dosage: FREQUENCY: WHEN THE PATIENT FEELS PAIN
     Route: 065
  15. ANAFRANIL [Concomitant]
     Active Substance: CLOMIPRAMINE HYDROCHLORIDE
     Indication: DEPRESSION

REACTIONS (17)
  - Reflux gastritis [Recovering/Resolving]
  - Spinal pain [Not Recovered/Not Resolved]
  - Gastritis [Recovering/Resolving]
  - Urinary tract infection [Unknown]
  - Leukopenia [Unknown]
  - Intervertebral disc protrusion [Unknown]
  - Joint dislocation [Unknown]
  - Red blood cell count decreased [Unknown]
  - Nephrolithiasis [Not Recovered/Not Resolved]
  - Gastritis [Unknown]
  - Nasopharyngitis [Unknown]
  - Viral infection [Unknown]
  - Infection [Not Recovered/Not Resolved]
  - Somnolence [Not Recovered/Not Resolved]
  - Sinusitis [Unknown]
  - Pyelonephritis [Unknown]
  - Somnolence [Unknown]

NARRATIVE: CASE EVENT DATE: 2011
